FAERS Safety Report 25857344 (Version 2)
Quarter: 2025Q4

REPORT INFORMATION
  Report Type: Report from Study
  Country: US (occurrence: US)
  Receive Date: 20250929
  Receipt Date: 20251031
  Transmission Date: 20260118
  Serious: No
  Sender: TRAVERE THERAPEUTICS
  Company Number: US-TRAVERE-2025TVT01091

PATIENT
  Age: 43 Year
  Sex: Male
  Weight: 84 kg

DRUGS (2)
  1. FILSPARI [Suspect]
     Active Substance: SPARSENTAN
     Indication: IgA nephropathy
     Route: 048
     Dates: start: 20250627
  2. FILSPARI [Suspect]
     Active Substance: SPARSENTAN
     Dosage: TITRATED FROM 200 MG TO 400 MG.
     Route: 048
     Dates: start: 202507

REACTIONS (8)
  - Urine albumin/creatinine ratio increased [Unknown]
  - Urine protein/creatinine ratio increased [Unknown]
  - Blood urea increased [Unknown]
  - Protein urine [Unknown]
  - Blood urine [Unknown]
  - Red blood cells urine [Unknown]
  - Dizziness [Unknown]
  - Hypotension [Unknown]

NARRATIVE: CASE EVENT DATE: 20250710
